FAERS Safety Report 10583382 (Version 2)
Quarter: 2015Q1

REPORT INFORMATION
  Report Type: Spontaneous
  Country: US (occurrence: US)
  Receive Date: 20141114
  Receipt Date: 20150303
  Transmission Date: 20150720
  Serious: Yes (Congenital Anomaly, Other)
  Sender: FDA-Public Use
  Company Number: US-ELI_LILLY_AND_COMPANY-US201411002672

PATIENT
  Sex: Female

DRUGS (1)
  1. PROZAC [Suspect]
     Active Substance: FLUOXETINE HYDROCHLORIDE
     Indication: PRODUCT USED FOR UNKNOWN INDICATION
     Dosage: UNK, UNKNOWN
     Route: 064

REACTIONS (8)
  - Turner^s syndrome [Unknown]
  - Coarctation of the aorta [Unknown]
  - Hydrops foetalis [Unknown]
  - Cystic lymphangioma [Unknown]
  - Congenital lymphoedema [Unknown]
  - Cardiomegaly [Unknown]
  - Bicuspid aortic valve [Unknown]
  - Foetal exposure during pregnancy [Recovered/Resolved]
